FAERS Safety Report 25079048 (Version 8)
Quarter: 2025Q2

REPORT INFORMATION
  Report Type: Spontaneous
  Country: US (occurrence: US)
  Receive Date: 20250314
  Receipt Date: 20250624
  Transmission Date: 20250716
  Serious: No
  Sender: PFIZER
  Company Number: US-PFIZER INC-202500050758

PATIENT
  Age: 7 Year
  Sex: Female
  Weight: 15.873 kg

DRUGS (1)
  1. GENOTROPIN [Suspect]
     Active Substance: SOMATROPIN
     Dosage: 1.0 MG, DAILY 7 DAYS PER WEEK
     Route: 058
     Dates: start: 202502

REACTIONS (2)
  - Device failure [Unknown]
  - Device breakage [Unknown]
